FAERS Safety Report 8124532-8 (Version None)
Quarter: 2012Q1

REPORT INFORMATION
  Report Type: 
  Country: None (occurrence: None)
  Receive Date: 20120209
  Receipt Date: 20120206
  Transmission Date: 20120608
  Serious: Yes (Hospitalization)
  Sender: FDA-Public Use
  Company Number: US-B.I. PHARMACEUTICALS,INC./RIDGEFIELD-2012-BP-02306BP

PATIENT
  Sex: Female

DRUGS (7)
  1. METOPROLOL [Concomitant]
     Dosage: 50 MG
     Route: 048
  2. ALLOPURINOL [Concomitant]
     Dosage: 100 MG
     Route: 048
  3. LISINOPRIL [Concomitant]
     Dosage: 10 MG
     Route: 048
  4. PRADAXA [Suspect]
     Dosage: 150 MG
     Route: 048
     Dates: start: 20120118, end: 20120201
  5. DIGOXIN [Concomitant]
     Dosage: 0.125 MG
     Route: 048
  6. PRADAXA [Suspect]
     Indication: ATRIAL FIBRILLATION
     Dosage: 300 MG
     Route: 048
     Dates: start: 20110829, end: 20120118
  7. LASIX [Concomitant]
     Dosage: 40 MG
     Route: 048

REACTIONS (4)
  - HAEMOGLOBIN DECREASED [None]
  - GASTROINTESTINAL HAEMORRHAGE [None]
  - MELAENA [None]
  - RENAL IMPAIRMENT [None]
